FAERS Safety Report 17430467 (Version 1)
Quarter: 2020Q1

REPORT INFORMATION
  Report Type: Spontaneous
  Country: DE (occurrence: DE)
  Receive Date: 20200218
  Receipt Date: 20200218
  Transmission Date: 20200409
  Serious: Yes (Death, Life-Threatening, Hospitalization, Other)
  Sender: FDA-Public Use
  Company Number: DE-JAZZ-2020-DE-002198

PATIENT
  Age: 58 Year
  Sex: Male

DRUGS (2)
  1. VYXEOS [Suspect]
     Active Substance: CYTARABINE\DAUNORUBICIN
     Dosage: 144 MG/M? INDUCTION 2
     Route: 042
     Dates: start: 20200113
  2. VYXEOS [Suspect]
     Active Substance: CYTARABINE\DAUNORUBICIN
     Indication: ACUTE MYELOID LEUKAEMIA
     Dosage: INDUCTION 1
     Dates: start: 201912

REACTIONS (6)
  - Off label use [Unknown]
  - Cardiac arrest [Fatal]
  - Atrial fibrillation [Recovered/Resolved]
  - Cardiotoxicity [Fatal]
  - Arrhythmia [Recovered/Resolved]
  - Atrioventricular block complete [Recovered/Resolved]

NARRATIVE: CASE EVENT DATE: 202001
